FAERS Safety Report 24693124 (Version 1)
Quarter: 2024Q4

REPORT INFORMATION
  Report Type: Spontaneous
  Country: BR (occurrence: BR)
  Receive Date: 20241203
  Receipt Date: 20241203
  Transmission Date: 20250115
  Serious: Yes (Other)
  Sender: DAIICHI
  Company Number: BR-DSJP-DS-2024-109929-BR

PATIENT
  Age: 53 Year
  Sex: Female

DRUGS (1)
  1. ENHERTU [Suspect]
     Active Substance: FAM-TRASTUZUMAB DERUXTECAN-NXKI
     Indication: Disease progression
     Dosage: 5.4 MG/KG
     Route: 065
     Dates: start: 202308, end: 202409

REACTIONS (1)
  - Metastases to bone [Unknown]
